FAERS Safety Report 17968577 (Version 1)
Quarter: 2020Q3

REPORT INFORMATION
  Report Type: Spontaneous
  Country: SI (occurrence: SI)
  Receive Date: 20200701
  Receipt Date: 20200701
  Transmission Date: 20201103
  Serious: Yes (Other)
  Sender: FDA-Public Use
  Company Number: SI-B.I. PHARMACEUTICALS,INC./RIDGEFIELD-2020-BI-031517

PATIENT
  Age: 79 Year
  Sex: Female

DRUGS (3)
  1. PRADAXA [Suspect]
     Active Substance: DABIGATRAN ETEXILATE MESYLATE
     Indication: PRODUCT USED FOR UNKNOWN INDICATION
     Route: 065
     Dates: start: 201812, end: 202001
  2. LOW MOLECULAR WEIGHT HEPARIN [Concomitant]
     Active Substance: UNSPECIFIED INGREDIENT
     Indication: PRODUCT USED FOR UNKNOWN INDICATION
     Route: 065
     Dates: end: 201812
  3. LOW MOLECULAR WEIGHT HEPARIN [Concomitant]
     Active Substance: UNSPECIFIED INGREDIENT
     Route: 065
     Dates: start: 202001

REACTIONS (17)
  - Adenocarcinoma [Unknown]
  - Left ventricular dysfunction [Unknown]
  - Thrombophlebitis [Unknown]
  - Heart rate increased [Unknown]
  - Left atrial volume increased [Unknown]
  - Cholelithiasis [Unknown]
  - Hepatic vein dilatation [Unknown]
  - Weight decreased [Unknown]
  - Hypotension [Unknown]
  - Electrocardiogram ambulatory [Unknown]
  - Jaundice [Unknown]
  - Chest pain [Unknown]
  - Atrial fibrillation [Unknown]
  - Pulmonary hypertension [Unknown]
  - Bladder neck operation [Unknown]
  - Pruritus [Unknown]
  - Carbohydrate antigen 19-9 increased [Unknown]

NARRATIVE: CASE EVENT DATE: 201910
